FAERS Safety Report 5513781-0 (Version None)
Quarter: 2007Q4

REPORT INFORMATION
  Report Type: 
  Country: None (occurrence: None)
  Receive Date: 20071102
  Receipt Date: 20070228
  Transmission Date: 20080405
  Serious: Yes (Hospitalization)
  Sender: FDA-Public Use
  Company Number: US-JNJFOC-20070302748

PATIENT
  Age: 38 Year
  Sex: Female
  Weight: 70.7611 kg

DRUGS (1)
  1. TYLENOL W/ CODEINE [Suspect]
     Indication: INTENTIONAL OVERDOSE

REACTIONS (1)
  - INTENTIONAL OVERDOSE [None]
